FAERS Safety Report 9165393 (Version 1)
Quarter: 2013Q1

REPORT INFORMATION
  Report Type: Spontaneous
  Country: DE (occurrence: DE)
  Receive Date: 20130315
  Receipt Date: 20130315
  Transmission Date: 20140127
  Serious: Yes (Hospitalization)
  Sender: FDA-Public Use
  Company Number: DE-TEVA-391630GER

PATIENT
  Age: 32 Year
  Sex: Male

DRUGS (4)
  1. TEMOZOLOMIDE [Suspect]
     Indication: MEDULLOBLASTOMA
     Route: 048
     Dates: start: 201111
  2. TEMOZOLOMIDE [Suspect]
     Dates: start: 200808, end: 201007
  3. DEPOCYTE [Concomitant]
     Indication: MEDULLOBLASTOMA
     Route: 037
     Dates: start: 201111, end: 201206
  4. MTX [Concomitant]
     Indication: MEDULLOBLASTOMA
     Dates: start: 201207, end: 201212

REACTIONS (1)
  - Hypoacusis [Recovered/Resolved with Sequelae]
